FAERS Safety Report 19242004 (Version 3)
Quarter: 2021Q2

REPORT INFORMATION
  Report Type: Spontaneous
  Country: NL (occurrence: NL)
  Receive Date: 20210510
  Receipt Date: 20210518
  Transmission Date: 20210717
  Serious: Yes (Life-Threatening, Other)
  Sender: FDA-Public Use
  Company Number: NL-SA-2021SA151649

PATIENT
  Age: 78 Year
  Sex: Female
  Weight: 63 kg

DRUGS (11)
  1. OMEGA?3 FISH OIL [Concomitant]
     Active Substance: FISH OIL\OMEGA-3 FATTY ACIDS
     Dosage: 2 DF, QD
     Route: 065
  2. DAVITAMON [Concomitant]
     Active Substance: VITAMIN A PALMITATE
     Dosage: 1 A 3DRAGEES P.DAG
     Route: 065
  3. GLUCOSAMINE [Concomitant]
     Active Substance: GLUCOSAMINE
     Dosage: 1500 MG PER DAY
     Route: 065
  4. SIMVASTATINE [Concomitant]
     Active Substance: SIMVASTATIN
     Dosage: FILM COATED TABLET, 20 MG (MILLIGRAM)
  5. METOPROLOL SUCCINATE. [Concomitant]
     Active Substance: METOPROLOL SUCCINATE
     Dosage: 1/2 X 25
     Route: 065
  6. LITHIUMCARBONAAT [Concomitant]
     Active Substance: LITHIUM CARBONATE
     Dosage: 300MG PER DAY
     Route: 065
  7. CLOPIDOGREL BISULFATE. [Suspect]
     Active Substance: CLOPIDOGREL BISULFATE
     Indication: ANTICOAGULANT THERAPY
     Dosage: ONCE PER DAY 1 PIECE
     Route: 065
     Dates: start: 20210331
  8. FRAXIPARINE [Suspect]
     Active Substance: NADROPARIN CALCIUM
     Indication: HIP SURGERY
     Dosage: 1X PER DAY 1 SYRINGE
     Route: 065
     Dates: start: 20210331
  9. COLECALCIFEROL [Concomitant]
     Active Substance: CHOLECALCIFEROL
     Dosage: ONCE PER DAY 50 MG
     Route: 065
  10. PFIZER?BIONTECH COVID?19 VACCINE [Suspect]
     Active Substance: TOZINAMERAN
     Indication: COVID-19 IMMUNISATION
     Dosage: 1 DF
     Route: 065
     Dates: start: 20210411
  11. HYDROCHLOROTHIAZIDE. [Concomitant]
     Active Substance: HYDROCHLOROTHIAZIDE
     Dosage: 1X PER DAY 22.5 MG
     Route: 065

REACTIONS (1)
  - Transient ischaemic attack [Recovering/Resolving]

NARRATIVE: CASE EVENT DATE: 20210414
